FAERS Safety Report 14939114 (Version 1)
Quarter: 2018Q2

REPORT INFORMATION
  Report Type: Spontaneous
  Country: GB (occurrence: GB)
  Receive Date: 20180525
  Receipt Date: 20180525
  Transmission Date: 20180711
  Serious: Yes (Hospitalization)
  Sender: FDA-Public Use
  Company Number: GB-EMD SERONO-9028442

PATIENT
  Sex: Female

DRUGS (1)
  1. REBIF [Suspect]
     Active Substance: INTERFERON BETA-1A
     Indication: MULTIPLE SCLEROSIS
     Dosage: (6MIU)
     Route: 058
     Dates: start: 20070514

REACTIONS (3)
  - Memory impairment [Unknown]
  - Procedural pain [Not Recovered/Not Resolved]
  - Intervertebral disc degeneration [Unknown]
